FAERS Safety Report 10756905 (Version 1)
Quarter: 2015Q1

REPORT INFORMATION
  Report Type: Spontaneous
  Country: US (occurrence: US)
  Receive Date: 20150203
  Receipt Date: 20150203
  Transmission Date: 20150721
  Serious: Yes (Death, Hospitalization)
  Sender: FDA-Public Use
  Company Number: PHHY2015US010441

PATIENT
  Sex: Male

DRUGS (2)
  1. INFLIXIMAB [Concomitant]
     Active Substance: INFLIXIMAB
     Indication: RHEUMATOID ARTHRITIS
     Route: 065
  2. CEFDINIR. [Suspect]
     Active Substance: CEFDINIR
     Indication: SINUSITIS
     Route: 065

REACTIONS (7)
  - Clostridium difficile infection [Unknown]
  - Death [Fatal]
  - Diarrhoea [Unknown]
  - Multi-organ failure [Unknown]
  - Pallor [Unknown]
  - Hypotension [Unknown]
  - Megacolon [Unknown]
